FAERS Safety Report 5165469-6 (Version None)
Quarter: 2006Q4

REPORT INFORMATION
  Report Type: 
  Country: None (occurrence: None)
  Receive Date: 20061206
  Receipt Date: 20060511
  Transmission Date: 20070319
  Serious: Yes (Hospitalization, Disabling)
  Sender: FDA-Public Use
  Company Number: PHHO2006DE07660

PATIENT
  Age: 54 Year
  Sex: Male
  Weight: 80.6 kg

DRUGS (5)
  1. PREDNISON [Concomitant]
     Indication: NERVOUS SYSTEM DISORDER
  2. ZOLEDRONIC ACID [Suspect]
     Indication: METASTASES TO BONE
     Dosage: 4MG EVERY  3 WEEKS
     Route: 042
     Dates: start: 20060307, end: 20061113
  3. ACETAMINOPHEN [Concomitant]
     Indication: PAIN
  4. INTERFERON [Concomitant]
     Indication: RENAL CELL CARCINOMA STAGE UNSPECIFIED
  5. RANITIDINE HYDROCHLORIDE [Concomitant]

REACTIONS (3)
  - DENTAL OPERATION [None]
  - OSTEONECROSIS [None]
  - TOOTH INFECTION [None]
